FAERS Safety Report 6619944-5 (Version None)
Quarter: 2010Q1

REPORT INFORMATION
  Report Type: 
  Country: None (occurrence: None)
  Receive Date: 20100309
  Receipt Date: 20100223
  Transmission Date: 20100710
  Serious: Yes (Hospitalization)
  Sender: FDA-Public Use
  Company Number: TR-MEDIMMUNE-MEDI-0010652

PATIENT
  Age: 3 Month
  Sex: Female
  Weight: 4.2 kg

DRUGS (1)
  1. SYNAGIS [Suspect]
     Route: 030
     Dates: start: 20100216

REACTIONS (5)
  - CHILLS [None]
  - COUGH [None]
  - DIARRHOEA [None]
  - INFECTION [None]
  - PYREXIA [None]
